FAERS Safety Report 5165524-0 (Version None)
Quarter: 2006Q4

REPORT INFORMATION
  Report Type: 
  Country: None (occurrence: None)
  Receive Date: 20061206
  Receipt Date: 20061117
  Transmission Date: 20070319
  Serious: Yes (Death)
  Sender: FDA-Public Use
  Company Number: US-ROCHE-472018

PATIENT
  Age: 65 Year
  Sex: Male
  Weight: 120.2 kg

DRUGS (6)
  1. XELODA [Suspect]
     Route: 048
  2. LOMOTIL [Concomitant]
     Indication: PAIN
  3. VALIUM [Concomitant]
  4. PERCOCET [Concomitant]
  5. OXYCONTIN [Concomitant]
  6. MULTI-VITAMIN [Concomitant]

REACTIONS (3)
  - CORONARY ARTERY DISEASE [None]
  - DEHYDRATION [None]
  - MEDICATION ERROR [None]
